FAERS Safety Report 6782883-3 (Version None)
Quarter: 2010Q2

REPORT INFORMATION
  Report Type: 
  Country: None (occurrence: None)
  Receive Date: 20100621
  Receipt Date: 20100617
  Transmission Date: 20101027
  Serious: Yes (Hospitalization, Other)
  Sender: FDA-Public Use
  Company Number: US-BRISTOL-MYERS SQUIBB COMPANY-15154453

PATIENT
  Age: 63 Year
  Sex: Male
  Weight: 91 kg

DRUGS (2)
  1. AVALIDE [Suspect]
     Indication: HYPERTENSION
     Dosage: 4 TO 5 YEARS AGO
     Route: 048
  2. DYAZIDE [Suspect]

REACTIONS (3)
  - LIVER DISORDER [None]
  - LUNG INFECTION [None]
  - OEDEMA PERIPHERAL [None]
